FAERS Safety Report 5901029-4 (Version None)
Quarter: 2008Q3

REPORT INFORMATION
  Report Type: 
  Country: None (occurrence: None)
  Receive Date: 20080924
  Receipt Date: 20080919
  Transmission Date: 20090109
  Serious: Yes (Life-Threatening, Hospitalization)
  Sender: FDA-Public Use
  Company Number: 2008SP007794

PATIENT
  Age: 58 Year
  Sex: Female
  Weight: 42 kg

DRUGS (4)
  1. TEMODAL [Suspect]
     Indication: ANAPLASTIC ASTROCYTOMA
     Dosage: 200 MG;QD;PO
     Route: 048
     Dates: start: 20070926
  2. DECADRON [Concomitant]
  3. MUCOSTA [Concomitant]
  4. DEPAS [Concomitant]

REACTIONS (4)
  - ACUTE RESPIRATORY FAILURE [None]
  - DEPRESSED LEVEL OF CONSCIOUSNESS [None]
  - PNEUMOCYSTIS JIROVECI PNEUMONIA [None]
  - PNEUMONIA PNEUMOCOCCAL [None]
